FAERS Safety Report 7789239-5 (Version None)
Quarter: 2011Q3

REPORT INFORMATION
  Report Type: 
  Country: None (occurrence: None)
  Receive Date: 20110930
  Receipt Date: 20110921
  Transmission Date: 20111222
  Serious: Yes (Hospitalization)
  Sender: FDA-Public Use
  Company Number: DE-TEVA-301653GER

PATIENT
  Sex: Female

DRUGS (1)
  1. METOCLOPRAMIDE [Suspect]
     Indication: ABDOMINAL DISCOMFORT
     Dosage: 72 GTT;
     Route: 048

REACTIONS (2)
  - MUSCLE SPASMS [None]
  - TOOTH FRACTURE [None]
